FAERS Safety Report 7460086-7 (Version None)
Quarter: 2011Q2

REPORT INFORMATION
  Report Type: 
  Country: None (occurrence: None)
  Receive Date: 20110505
  Receipt Date: 20110425
  Transmission Date: 20111010
  Serious: Yes (Hospitalization, Other)
  Sender: FDA-Public Use
  Company Number: PHHY2011US00756

PATIENT
  Sex: Male
  Weight: 84 kg

DRUGS (18)
  1. EXJADE [Suspect]
     Indication: CHRONIC MYELOID LEUKAEMIA
     Dosage: 1500 MG, QD
     Route: 048
     Dates: start: 20101122, end: 20110107
  2. DECITABINE [Suspect]
     Indication: CHRONIC LYMPHOCYTIC LEUKAEMIA
     Dosage: 40 MG, QD
     Route: 042
     Dates: start: 20100129, end: 20110107
  3. AMLODIPINE [Concomitant]
  4. ALLOPURINOL [Concomitant]
  5. LISINOPRIL [Concomitant]
  6. VITAMIN B-12 [Concomitant]
  7. VANCOMYCIN [Concomitant]
  8. DACOGEN [Concomitant]
     Indication: BONE MARROW FAILURE
     Dosage: UNK
     Dates: end: 20110325
  9. EXJADE [Suspect]
     Indication: SERUM FERRITIN INCREASED
  10. FOLIC ACID [Concomitant]
  11. ZANTAC [Concomitant]
  12. FILGRASTIM [Concomitant]
     Indication: WHITE BLOOD CELL COUNT DECREASED
     Dosage: UNK
  13. NEULASTA [Concomitant]
  14. VENLAFAXINE [Concomitant]
  15. PLATELETS [Concomitant]
     Indication: THROMBOCYTOPENIA
     Dosage: UNK
  16. PREDNISONE [Concomitant]
  17. OXYBUTYNIN [Concomitant]
  18. ASPIRIN [Concomitant]

REACTIONS (14)
  - PHARYNGEAL OEDEMA [None]
  - CONSTIPATION [None]
  - FEBRILE NEUTROPENIA [None]
  - ANAEMIA [None]
  - PLATELET COUNT DECREASED [None]
  - DIZZINESS [None]
  - GLOBULINS DECREASED [None]
  - APHAGIA [None]
  - THROMBOCYTOPENIA [None]
  - FATIGUE [None]
  - NEUTROPENIA [None]
  - INFECTION [None]
  - OROPHARYNGEAL PAIN [None]
  - WHITE BLOOD CELL COUNT DECREASED [None]
